FAERS Safety Report 5769234-8 (Version None)
Quarter: 2008Q2

REPORT INFORMATION
  Report Type: 
  Country: None (occurrence: None)
  Receive Date: 20080612
  Receipt Date: 20080326
  Transmission Date: 20081010
  Serious: No
  Sender: FDA-Public Use
  Company Number: US-ABBOTT-08P-163-0444139-00

PATIENT
  Sex: Female
  Weight: 104.42 kg

DRUGS (8)
  1. HUMIRA [Suspect]
     Indication: RHEUMATOID ARTHRITIS
     Route: 058
     Dates: start: 20071001
  2. ALENDRONATE SODIUM [Concomitant]
     Indication: OSTEOPOROSIS
  3. LOVASTATIN [Concomitant]
     Indication: BLOOD CHOLESTEROL INCREASED
  4. FUROSEMIDE [Concomitant]
     Indication: DIURETIC THERAPY
  5. HYDRALAZINE HCL [Concomitant]
     Indication: HYPERTENSION
  6. ZALATAN EYE DROPS [Concomitant]
     Indication: GLAUCOMA
  7. TRUSOTT EYE DROPS [Concomitant]
     Indication: GLAUCOMA
  8. PAIN PILLS [Concomitant]
     Indication: RHEUMATOID ARTHRITIS

REACTIONS (2)
  - COUGH [None]
  - PAIN [None]
